FAERS Safety Report 13459173 (Version 2)
Quarter: 2017Q2

REPORT INFORMATION
  Report Type: Spontaneous
  Country: FR (occurrence: FR)
  Receive Date: 20170419
  Receipt Date: 20170612
  Transmission Date: 20170830
  Serious: Yes (Death, Life-Threatening, Hospitalization, Other)
  Sender: FDA-Public Use
  Company Number: FR-STRIDES ARCOLAB LIMITED-2017SP006466

PATIENT

DRUGS (5)
  1. ZOLMITRIPTAN. [Concomitant]
     Active Substance: ZOLMITRIPTAN
     Indication: SINUSITIS
     Dosage: UNK
     Route: 065
  2. CEFPODOXIME PROXETIL. [Concomitant]
     Active Substance: CEFPODOXIME PROXETIL
     Indication: PAIN
     Dosage: UNK
     Route: 065
  3. IBUPROFEN. [Suspect]
     Active Substance: IBUPROFEN
     Indication: PAIN
     Dosage: UNK
     Route: 065
  4. PARACETAMOL [Suspect]
     Active Substance: ACETAMINOPHEN
     Indication: SINUSITIS
     Dosage: UNK
     Route: 065
  5. KETOPROFEN. [Suspect]
     Active Substance: KETOPROFEN
     Indication: SINUSITIS
     Dosage: UNK, UNKNOWN
     Route: 065

REACTIONS (14)
  - Brain death [Fatal]
  - Disorientation [Unknown]
  - Streptococcal infection [Unknown]
  - Musculoskeletal stiffness [Unknown]
  - Hemiplegia [Unknown]
  - Aphasia [Unknown]
  - Nystagmus [Unknown]
  - Brain oedema [Unknown]
  - Coma [Unknown]
  - Meningoencephalitis bacterial [Unknown]
  - Consciousness fluctuating [Unknown]
  - Hemianopia homonymous [Unknown]
  - Brain herniation [Unknown]
  - Agitation [Unknown]
